FAERS Safety Report 9699362 (Version 1)
Quarter: 2013Q4

REPORT INFORMATION
  Report Type: Spontaneous
  Country: US (occurrence: US)
  Receive Date: 20131120
  Receipt Date: 20131120
  Transmission Date: 20140711
  Serious: No
  Sender: FDA-Public Use
  Company Number: US-TEVA-368340USA

PATIENT
  Age: 22 Year
  Sex: Female
  Weight: 59.02 kg

DRUGS (1)
  1. PARAGARD 380A [Suspect]
     Indication: CONTRACEPTION
     Route: 015
     Dates: start: 20120621

REACTIONS (4)
  - Menorrhagia [Not Recovered/Not Resolved]
  - Breast swelling [Not Recovered/Not Resolved]
  - Oedema genital [Not Recovered/Not Resolved]
  - Weight increased [Not Recovered/Not Resolved]
